FAERS Safety Report 7037999-3 (Version None)
Quarter: 2010Q4

REPORT INFORMATION
  Report Type: 
  Country: None (occurrence: None)
  Receive Date: 20101011
  Receipt Date: 20100929
  Transmission Date: 20110411
  Serious: Yes (Hospitalization)
  Sender: FDA-Public Use
  Company Number: US-WYE-H17997310

PATIENT
  Age: 76 Year
  Sex: Female
  Weight: 56.4 kg

DRUGS (11)
  1. EFFEXOR XR [Suspect]
  2. FORTEO [Suspect]
     Dosage: 20 MCG DAILY
     Route: 058
  3. LISINOPRIL [Suspect]
  4. HYDROCHLOROTHIAZIDE [Suspect]
  5. ANASTROZOLE [Suspect]
     Indication: BREAST CANCER
     Dates: start: 20051213, end: 20100804
  6. ASCORBIC ACID [Concomitant]
  7. FISH OIL, HYDROGENATED [Concomitant]
  8. ACETYLSALICYLIC ACID SRT [Concomitant]
  9. COLECALCIFEROL [Concomitant]
  10. NORVASC [Suspect]
  11. TIOTROPIUM BROMIDE [Suspect]
     Dosage: ONE PUFF DAILY
     Route: 055

REACTIONS (7)
  - BUNDLE BRANCH BLOCK LEFT [None]
  - CARDIAC FAILURE CONGESTIVE [None]
  - CARDIOMYOPATHY [None]
  - HYPOXIA [None]
  - MYOCARDIAL INFARCTION [None]
  - MYOCARDIAL ISCHAEMIA [None]
  - TROPONIN INCREASED [None]
